FAERS Safety Report 11678597 (Version 2)
Quarter: 2015Q4

REPORT INFORMATION
  Report Type: Spontaneous
  Country: US (occurrence: US)
  Receive Date: 20151027
  Receipt Date: 20151110
  Transmission Date: 20160304
  Serious: No
  Sender: FDA-Public Use
  Company Number: US-ELI_LILLY_AND_COMPANY-US201006005951

PATIENT
  Age: 59 Year
  Sex: Female

DRUGS (2)
  1. FORTEO [Suspect]
     Active Substance: TERIPARATIDE
     Indication: OSTEOPOROSIS
     Dosage: UNK, DAILY (1/D)
     Dates: start: 20100621
  2. FORTEO [Suspect]
     Active Substance: TERIPARATIDE
     Dosage: UNK, DAILY (1/D)
     Dates: end: 2012

REACTIONS (7)
  - Muscle spasms [Recovered/Resolved]
  - Injection site bruising [Recovering/Resolving]
  - Foot fracture [Unknown]
  - Injection site pruritus [Unknown]
  - Pain in extremity [Recovered/Resolved]
  - Injection site erythema [Unknown]
  - Injection site pain [Recovered/Resolved]

NARRATIVE: CASE EVENT DATE: 201112
